FAERS Safety Report 6390624-7 (Version None)
Quarter: 2009Q4

REPORT INFORMATION
  Report Type: 
  Country: None (occurrence: None)
  Receive Date: 20091006
  Receipt Date: 20090929
  Transmission Date: 20100525
  Serious: Yes (Other)
  Sender: FDA-Public Use
  Company Number: US-AVENTIS-200917724US

PATIENT
  Sex: Male
  Weight: 74.1 kg

DRUGS (7)
  1. LASIX [Suspect]
     Dosage: DOSE: VARIES
  2. MULTAQ [Suspect]
     Route: 048
     Dates: start: 20090804, end: 20090808
  3. MULTAQ [Suspect]
     Indication: LEFT VENTRICULAR DYSFUNCTION
     Route: 048
     Dates: start: 20090804, end: 20090808
  4. CARVEDILOL [Concomitant]
  5. GLIPIZIDE [Concomitant]
  6. FLOMAX [Concomitant]
     Indication: BENIGN PROSTATIC HYPERPLASIA
     Route: 048
  7. ZOCOR [Concomitant]
     Indication: CORONARY ARTERY DISEASE

REACTIONS (2)
  - BLOOD CREATININE INCREASED [None]
  - RENAL FAILURE [None]
